FAERS Safety Report 20447736 (Version 2)
Quarter: 2022Q1

REPORT INFORMATION
  Report Type: Spontaneous
  Country: CN (occurrence: CN)
  Receive Date: 20220209
  Receipt Date: 20220221
  Transmission Date: 20220424
  Serious: Yes (Hospitalization, Other)
  Sender: FDA-Public Use
  Company Number: CN-SA-SAC20220204000005

PATIENT
  Age: 85 Year
  Sex: Female

DRUGS (2)
  1. PLAVIX [Suspect]
     Active Substance: CLOPIDOGREL BISULFATE
     Indication: Pyrexia
     Dosage: 75 MG, QD
     Route: 045
     Dates: start: 20220101, end: 20220103
  2. RIVAROXABAN [Suspect]
     Active Substance: RIVAROXABAN
     Indication: Pyrexia
     Dosage: 10 MG, QD
     Route: 045
     Dates: start: 20220101, end: 20220103

REACTIONS (1)
  - Haematochezia [Recovering/Resolving]

NARRATIVE: CASE EVENT DATE: 20220104
